FAERS Safety Report 16481815 (Version 5)
Quarter: 2020Q1

REPORT INFORMATION
  Report Type: Report from Study
  Country: CA (occurrence: CA)
  Receive Date: 20190627
  Receipt Date: 20200129
  Transmission Date: 20200409
  Serious: Yes (Hospitalization, Other)
  Sender: FDA-Public Use
  Company Number: CA-ROCHE-2342925

PATIENT
  Age: 59 Year
  Sex: Female

DRUGS (23)
  1. RITUXAN [Suspect]
     Active Substance: RITUXIMAB
     Route: 042
     Dates: start: 20190708
  2. GRAVOL [Concomitant]
     Active Substance: DIMENHYDRINATE
  3. RITUXAN [Suspect]
     Active Substance: RITUXIMAB
     Indication: POLYCHONDRITIS
     Dosage: DAY 1, 15, FIRST PIR RECEIVED;
     Route: 042
     Dates: start: 20190618
  4. AMITRIPTYLINE [Concomitant]
     Active Substance: AMITRIPTYLINE
     Route: 065
  5. ATORVASTATIN [Concomitant]
     Active Substance: ATORVASTATIN
     Route: 065
  6. BETAHISTINE [Concomitant]
     Active Substance: BETAHISTINE
     Dosage: TWO - THREE CAPS THREE TIMES DAILY AS REQUIRED
     Route: 065
  7. FUROSEMIDE. [Concomitant]
     Active Substance: FUROSEMIDE
     Route: 065
  8. AMLODIPINE [Concomitant]
     Active Substance: AMLODIPINE BESYLATE
     Route: 065
  9. GRAVOL [Concomitant]
     Active Substance: DIMENHYDRINATE
  10. QUETIAPINE. [Concomitant]
     Active Substance: QUETIAPINE
     Route: 048
  11. SYNTHROID [Concomitant]
     Active Substance: LEVOTHYROXINE SODIUM
  12. SULFASALAZINE. [Concomitant]
     Active Substance: SULFASALAZINE
  13. RITUXAN [Suspect]
     Active Substance: RITUXIMAB
     Route: 042
     Dates: start: 20190107
  14. CELLCEPT [Suspect]
     Active Substance: MYCOPHENOLATE MOFETIL\MYCOPHENOLATE MOFETIL HYDROCHLORIDE
     Indication: PRODUCT USED FOR UNKNOWN INDICATION
     Route: 065
  15. GABAPENTIN. [Concomitant]
     Active Substance: GABAPENTIN
     Route: 065
  16. POTASSIUM [Concomitant]
     Active Substance: POTASSIUM
     Route: 065
  17. SOLU-MEDROL [Concomitant]
     Active Substance: METHYLPREDNISOLONE SODIUM SUCCINATE
     Indication: PREMEDICATION
     Route: 042
     Dates: start: 20190618
  18. PREDNISONE. [Concomitant]
     Active Substance: PREDNISONE
     Route: 048
     Dates: start: 201912
  19. AMLODIPINE [Concomitant]
     Active Substance: AMLODIPINE BESYLATE
     Route: 065
  20. BENADRYL [Concomitant]
     Active Substance: DIPHENHYDRAMINE HYDROCHLORIDE
     Indication: PREMEDICATION
     Route: 048
     Dates: start: 20190618
  21. LAMISIL [Concomitant]
     Active Substance: TERBINAFINE HYDROCHLORIDE
  22. LORAZEPAM. [Concomitant]
     Active Substance: LORAZEPAM
     Route: 065
  23. TYLENOL [Concomitant]
     Active Substance: ACETAMINOPHEN
     Indication: PREMEDICATION
     Route: 048
     Dates: start: 20190618

REACTIONS (17)
  - Oxygen saturation decreased [Unknown]
  - Dyspnoea [Unknown]
  - Blood pressure systolic increased [Unknown]
  - Neck injury [Unknown]
  - Infusion related reaction [Recovered/Resolved]
  - Dyspnoea [Unknown]
  - Arthralgia [Unknown]
  - Asthma [Unknown]
  - Off label use [Unknown]
  - Product use in unapproved indication [Unknown]
  - Infusion related reaction [Unknown]
  - Musculoskeletal chest pain [Unknown]
  - C-reactive protein increased [Unknown]
  - Oxygen saturation decreased [Unknown]
  - Tracheal obstruction [Unknown]
  - Blood pressure systolic abnormal [Unknown]
  - Blood pressure diastolic abnormal [Unknown]

NARRATIVE: CASE EVENT DATE: 20190618
